FAERS Safety Report 9314544 (Version 1)
Quarter: 2013Q2

REPORT INFORMATION
  Report Type: Other
  Country: US (occurrence: US)
  Receive Date: 20130529
  Receipt Date: 20130529
  Transmission Date: 20140414
  Serious: Yes (Other)
  Sender: FDA-Public Use
  Company Number: US-DYAX CORP.-2013DX000093

PATIENT
  Age: 41 Year
  Sex: Female

DRUGS (6)
  1. KALBITOR [Suspect]
     Indication: HEREDITARY ANGIOEDEMA
     Route: 058
     Dates: start: 201304, end: 201304
  2. KALBITOR [Suspect]
     Route: 058
     Dates: start: 201206, end: 201304
  3. CYMBALTA [Concomitant]
     Indication: DEPRESSION
     Route: 048
  4. CYMBALTA [Concomitant]
     Indication: MYALGIA
  5. ADDERALL [Concomitant]
     Indication: ATTENTION DEFICIT/HYPERACTIVITY DISORDER
     Route: 048
     Dates: start: 2010
  6. BENADRYL [Concomitant]
     Indication: HEREDITARY ANGIOEDEMA
     Route: 048

REACTIONS (7)
  - Angioedema [Recovered/Resolved]
  - Anaphylactic reaction [Recovered/Resolved]
  - Vasoconstriction [Unknown]
  - Abdominal discomfort [Unknown]
  - Infection [Unknown]
  - Sinus operation [Recovered/Resolved]
  - Off label use [Unknown]
